FAERS Safety Report 8165323-1 (Version None)
Quarter: 2012Q1

REPORT INFORMATION
  Report Type: 
  Country: None (occurrence: None)
  Receive Date: 20120223
  Receipt Date: 20120223
  Transmission Date: 20120608
  Serious: Yes (Hospitalization, Other)
  Sender: FDA-Public Use
  Company Number: None

PATIENT
  Age: 14 Year
  Sex: Female
  Weight: 92.9 kg

DRUGS (2)
  1. BYETTA [Suspect]
     Dosage: 10 MCG SQ BID
     Route: 058
     Dates: start: 20100414
  2. BYETTA [Suspect]
     Indication: OBESITY
     Dosage: 5 MCG SQ PEN
     Route: 058
     Dates: start: 20100226, end: 20100413

REACTIONS (4)
  - CHOLECYSTITIS [None]
  - CHOLELITHIASIS [None]
  - GALLBLADDER DISORDER [None]
  - FIBROSIS [None]
